FAERS Safety Report 13478064 (Version 2)
Quarter: 2017Q3

REPORT INFORMATION
  Report Type: Report from Study
  Country: US (occurrence: US)
  Receive Date: 20170424
  Receipt Date: 20170728
  Transmission Date: 20171127
  Serious: No
  Sender: FDA-Public Use
  Company Number: US-AMGEN-USASL2017018472

PATIENT
  Age: 82 Year
  Sex: Female

DRUGS (1)
  1. REPATHA [Suspect]
     Active Substance: EVOLOCUMAB
     Indication: VASCULAR DEVICE USER
     Dosage: 140 MG, Q2WK
     Route: 065
     Dates: start: 201611, end: 20170127

REACTIONS (2)
  - Memory impairment [Unknown]
  - Wrong technique in product usage process [Unknown]
